FAERS Safety Report 10562827 (Version 3)
Quarter: 2015Q3

REPORT INFORMATION
  Report Type: Spontaneous
  Country: JP (occurrence: JP)
  Receive Date: 20141104
  Receipt Date: 20150713
  Transmission Date: 20151125
  Serious: Yes (Hospitalization)
  Sender: FDA-Public Use
  Company Number: JP-TEVA-514299ISR

PATIENT
  Age: 44 Year
  Sex: Male
  Weight: 52 kg

DRUGS (35)
  1. E-FEN BUCCAL [Suspect]
     Active Substance: FENTANYL CITRATE
     Dosage: DAILY DOSE: 200 MICROG - 400 MICROG
     Route: 002
     Dates: start: 20140511, end: 20140513
  2. DUROTEP [Concomitant]
     Active Substance: FENTANYL
     Dosage: 12.6 MILLIGRAM DAILY;
     Route: 062
     Dates: start: 20140519, end: 20140527
  3. OXIFAST [Concomitant]
     Active Substance: OXYCODONE
     Indication: CANCER PAIN
     Dosage: 24 MILLIGRAM DAILY;
     Route: 051
     Dates: start: 20140523, end: 20140529
  4. LECICARBON [Concomitant]
     Active Substance: SODIUM BICARBONATE\SODIUM PHOSPHATE, MONOBASIC
     Indication: CONSTIPATION
     Dosage: 1 DOSAGE FORMS DAILY;
     Route: 054
     Dates: start: 20140525, end: 20140531
  5. MEXITIL [Concomitant]
     Active Substance: MEXILETINE HYDROCHLORIDE
     Route: 048
     Dates: start: 20140526
  6. OPSO [Concomitant]
     Active Substance: MORPHINE HYDROCHLORIDE
     Dosage: 10 MILLIGRAM DAILY;
     Route: 048
     Dates: end: 20140625
  7. OXIFAST [Concomitant]
     Active Substance: OXYCODONE
     Dosage: 0.5 ML
     Route: 051
     Dates: start: 20140523, end: 20140529
  8. LYRICA [Concomitant]
     Active Substance: PREGABALIN
     Indication: CANCER PAIN
     Route: 048
     Dates: start: 20140519, end: 20140601
  9. LANDSEN [Concomitant]
     Active Substance: CLONAZEPAM
     Dosage: .75 MILLIGRAM DAILY;
     Route: 048
     Dates: start: 20140511
  10. RINDERON V [Concomitant]
     Active Substance: BETAMETHASONE VALERATE
     Route: 051
     Dates: start: 20140508, end: 20140514
  11. OXIFAST [Concomitant]
     Active Substance: OXYCODONE
     Dosage: 48 MILLIGRAM DAILY;
     Route: 051
     Dates: start: 20140529, end: 20140529
  12. E-FEN BUCCAL [Suspect]
     Active Substance: FENTANYL CITRATE
     Dosage: DAILY DOSE: 200 MICROG
     Route: 002
     Dates: start: 20140521, end: 20140625
  13. DUROTEP [Concomitant]
     Active Substance: FENTANYL
     Dosage: 14.7 MILLIGRAM DAILY;
     Route: 062
     Dates: start: 20140527
  14. OXYCONTIN [Concomitant]
     Active Substance: OXYCODONE HYDROCHLORIDE
     Dosage: 20 MILLIGRAM DAILY;
     Route: 048
     Dates: start: 20140513, end: 20140514
  15. MAGMITT [Concomitant]
     Active Substance: MAGNESIUM OXIDE
     Dosage: 2970 MILLIGRAM DAILY;
     Route: 048
  16. OXYCONTIN [Concomitant]
     Active Substance: OXYCODONE HYDROCHLORIDE
     Indication: CANCER PAIN
     Dosage: 20 MILLIGRAM DAILY;
     Route: 048
     Dates: end: 20140509
  17. NORITREN [Concomitant]
     Active Substance: NORTRIPTYLINE HYDROCHLORIDE
     Indication: CANCER PAIN
     Dosage: 20 MILLIGRAM DAILY;
     Route: 048
  18. GLYCERIN. [Concomitant]
     Active Substance: GLYCERIN
     Dosage: 1 DOSAGE FORMS DAILY;
     Route: 054
     Dates: start: 20140530, end: 20140607
  19. ATARAX-P [Concomitant]
     Active Substance: HYDROXYZINE HYDROCHLORIDE
     Dosage: 1 DOSAGE FORMS DAILY;
     Route: 051
     Dates: start: 20140628, end: 20140628
  20. E-FEN BUCCAL [Suspect]
     Active Substance: FENTANYL CITRATE
     Indication: BREAKTHROUGH PAIN
     Dosage: DAILY DOSE:100 MICROG -300 MICROG
     Route: 002
     Dates: start: 20140508, end: 20140511
  21. DUROTEP [Concomitant]
     Active Substance: FENTANYL
     Dosage: 8.4 MILLIGRAM DAILY;
     Route: 062
     Dates: start: 20140510, end: 20140516
  22. DUROTEP [Concomitant]
     Active Substance: FENTANYL
     Dosage: 10.5 MILLIGRAM DAILY;
     Route: 062
     Dates: start: 20140516, end: 20140518
  23. OXYCONTIN [Concomitant]
     Active Substance: OXYCODONE HYDROCHLORIDE
     Dosage: 10 MILLIGRAM DAILY;
     Route: 048
     Dates: start: 20140510, end: 20140512
  24. LANDSEN [Concomitant]
     Active Substance: CLONAZEPAM
     Indication: CANCER PAIN
     Dosage: .5 MILLIGRAM DAILY;
     Route: 048
     Dates: end: 20140510
  25. CELECOX [Concomitant]
     Active Substance: CELECOXIB
     Indication: CANCER PAIN
     Route: 048
     Dates: start: 20140526
  26. LAXOBERON [Concomitant]
     Active Substance: SODIUM PICOSULFATE
     Indication: CONSTIPATION
     Dosage: 1 DOSAGE FORMS DAILY;
     Route: 048
     Dates: start: 20140526
  27. E-FEN BUCCAL [Suspect]
     Active Substance: FENTANYL CITRATE
     Dosage: DAILY DOSE: 600 MICROG - 800 MICROG
     Route: 002
     Dates: start: 20140514, end: 20140520
  28. DUROTEP [Concomitant]
     Active Substance: FENTANYL
     Indication: CANCER PAIN
     Dosage: 6.3 MILLIGRAM DAILY;
     Route: 062
     Dates: end: 20140509
  29. OXYCONTIN [Concomitant]
     Active Substance: OXYCODONE HYDROCHLORIDE
     Dosage: 50 MILLIGRAM DAILY;
     Route: 048
     Dates: start: 20140528
  30. OXYCONTIN [Concomitant]
     Active Substance: OXYCODONE HYDROCHLORIDE
     Dosage: 30 MILLIGRAM DAILY;
     Route: 048
     Dates: start: 20140515, end: 20140519
  31. OPSO [Concomitant]
     Active Substance: MORPHINE HYDROCHLORIDE
     Indication: BREAKTHROUGH PAIN
     Dosage: 5 MILLIGRAM DAILY;
     Route: 048
  32. PURSENNID [Concomitant]
     Active Substance: SENNOSIDES A AND B
     Indication: CONSTIPATION
     Dosage: 24 MILLIGRAM DAILY;
     Route: 048
     Dates: start: 20140507
  33. BENZALIN [Concomitant]
     Active Substance: NITRAZEPAM
     Indication: INSOMNIA
     Dosage: 5 MILLIGRAM DAILY;
     Route: 048
     Dates: start: 20140507
  34. RINDERON V [Concomitant]
     Active Substance: BETAMETHASONE VALERATE
     Dosage: 4 MILLIGRAM DAILY;
     Route: 048
     Dates: end: 20140507
  35. NEXIUM [Concomitant]
     Active Substance: ESOMEPRAZOLE MAGNESIUM
     Indication: GASTRIC ULCER
     Dosage: 20 MILLIGRAM DAILY;
     Route: 048

REACTIONS (1)
  - Altered state of consciousness [Recovered/Resolved]

NARRATIVE: CASE EVENT DATE: 20140625
